FAERS Safety Report 24601675 (Version 1)
Quarter: 2024Q4

REPORT INFORMATION
  Report Type: Spontaneous
  Country: US (occurrence: US)
  Receive Date: 20241111
  Receipt Date: 20241111
  Transmission Date: 20250114
  Serious: Yes (Hospitalization, Other)
  Sender: EPIC PHARM
  Company Number: US-EPICPHARMA-US-2024EPCLIT01383

PATIENT
  Age: 12 Year
  Sex: Female

DRUGS (1)
  1. HYDROXYZINE HYDROCHLORIDE [Suspect]
     Active Substance: HYDROXYZINE HYDROCHLORIDE
     Indication: Product used for unknown indication
     Route: 065

REACTIONS (1)
  - Delirium [Recovered/Resolved]
